FAERS Safety Report 7243561-X (Version None)
Quarter: 2011Q1

REPORT INFORMATION
  Report Type: 
  Country: None (occurrence: None)
  Receive Date: 20110125
  Receipt Date: 20110111
  Transmission Date: 20110831
  Serious: Yes (Other)
  Sender: FDA-Public Use
  Company Number: PHHY2010US89492

PATIENT
  Sex: Female

DRUGS (2)
  1. GENTEAL PM LUBRICANT EYE OINTMENT [Suspect]
     Indication: DRY EYE
     Dosage: EVERY 2-3 HOURS
  2. ZADITOR [Suspect]

REACTIONS (4)
  - FOREIGN BODY SENSATION IN EYES [None]
  - OCULAR HYPERAEMIA [None]
  - THYROID DISORDER [None]
  - VISION BLURRED [None]
